FAERS Safety Report 22127485 (Version 1)
Quarter: 2023Q1

REPORT INFORMATION
  Report Type: Spontaneous
  Country: US (occurrence: US)
  Receive Date: 20230322
  Receipt Date: 20230322
  Transmission Date: 20230418
  Serious: No
  Sender: FDA-Public Use
  Company Number: US-JNJFOC-20230340735

PATIENT
  Sex: Female

DRUGS (3)
  1. SIMPONI ARIA [Suspect]
     Active Substance: GOLIMUMAB
     Indication: Inflammatory bowel disease
     Route: 041
     Dates: start: 20220923, end: 20221219
  2. SIMPONI ARIA [Suspect]
     Active Substance: GOLIMUMAB
     Indication: Enteritis
  3. SIMPONI ARIA [Suspect]
     Active Substance: GOLIMUMAB
     Indication: Ankylosing spondylitis

REACTIONS (3)
  - Arthralgia [Unknown]
  - Bone density decreased [Unknown]
  - Drug ineffective [Unknown]
